FAERS Safety Report 20259306 (Version 1)
Quarter: 2021Q4

REPORT INFORMATION
  Report Type: Spontaneous
  Country: GB (occurrence: GB)
  Receive Date: 20211230
  Receipt Date: 20211230
  Transmission Date: 20220303
  Serious: Yes (Other)
  Sender: FDA-Public Use
  Company Number: GB-JNJFOC-20211247245

PATIENT
  Age: 55 Year
  Sex: Female

DRUGS (4)
  1. ESTRADIOL [Suspect]
     Active Substance: ESTRADIOL
     Indication: Menopause
     Dosage: 250 DF, QD
     Route: 062
     Dates: start: 20211118, end: 20211205
  2. ESTRADIOL [Suspect]
     Active Substance: ESTRADIOL
     Indication: Menopausal symptoms
  3. NORETHINDRONE ACETATE [Suspect]
     Active Substance: NORETHINDRONE ACETATE
     Indication: Menopause
     Dosage: 2 DF, QD
     Route: 062
     Dates: start: 20211118, end: 20211205
  4. NORETHINDRONE ACETATE [Suspect]
     Active Substance: NORETHINDRONE ACETATE
     Indication: Menopausal symptoms

REACTIONS (4)
  - Vaginal haemorrhage [Not Recovered/Not Resolved]
  - Candida infection [Recovering/Resolving]
  - Oral pain [Recovering/Resolving]
  - Eye pain [Recovered/Resolved]

NARRATIVE: CASE EVENT DATE: 20211129
